FAERS Safety Report 6166240-9 (Version None)
Quarter: 2009Q2

REPORT INFORMATION
  Report Type: 
  Country: None (occurrence: None)
  Receive Date: 20090424
  Receipt Date: 20090417
  Transmission Date: 20091009
  Serious: Yes (Other)
  Sender: FDA-Public Use
  Company Number: PHEH2008US05589

PATIENT
  Sex: Female
  Weight: 90.703 kg

DRUGS (1)
  1. ZOMETA [Suspect]

REACTIONS (4)
  - BONE DISORDER [None]
  - OSTEONECROSIS [None]
  - PAIN [None]
  - TOOTH INFECTION [None]
